FAERS Safety Report 13938534 (Version 1)
Quarter: 2017Q3

REPORT INFORMATION
  Report Type: Spontaneous
  Country: US (occurrence: US)
  Receive Date: 20170905
  Receipt Date: 20170905
  Transmission Date: 20171127
  Serious: Yes (Death)
  Sender: FDA-Public Use
  Company Number: None

PATIENT
  Age: 84 Year
  Sex: Female
  Weight: 78.4 kg

DRUGS (1)
  1. APIXABAN [Suspect]
     Active Substance: APIXABAN
     Indication: ATRIAL FIBRILLATION
     Route: 048

REACTIONS (6)
  - Respiratory failure [None]
  - Aspiration [None]
  - Epistaxis [None]
  - Refusal of treatment by patient [None]
  - Pneumonia [None]
  - Obstructive airways disorder [None]

NARRATIVE: CASE EVENT DATE: 20170601
